FAERS Safety Report 21790809 (Version 1)
Quarter: 2022Q4

REPORT INFORMATION
  Report Type: Spontaneous
  Country: US (occurrence: None)
  Receive Date: 20221227
  Receipt Date: 20221227
  Transmission Date: 20230112
  Serious: No
  Sender: FDA-Public Use
  Company Number: None

PATIENT
  Sex: Male

DRUGS (1)
  1. HUMIRA [Suspect]
     Active Substance: ADALIMUMAB
     Indication: Psoriasis
     Dosage: OTHER QUANTITY : 40/0.4 MG/ML;?FREQUENCY : EVERY OTHER WEEK;?
     Dates: start: 20220826

REACTIONS (5)
  - Pruritus [None]
  - Burning sensation [None]
  - Pain [None]
  - Inflammation [None]
  - Injection site pain [None]
